FAERS Safety Report 5117495-0 (Version None)
Quarter: 2006Q3

REPORT INFORMATION
  Report Type: 
  Country: None (occurrence: None)
  Receive Date: 20060929
  Receipt Date: 20060925
  Transmission Date: 20061208
  Serious: Yes (Death, Life-Threatening)
  Sender: FDA-Public Use
  Company Number: CL-BAYER-200614281GDS

PATIENT
  Age: 78 Year
  Sex: Female

DRUGS (2)
  1. TRASYLOL [Suspect]
     Indication: MITRAL VALVE REPLACEMENT
     Route: 042
     Dates: start: 20060913
  2. CORTICOIDS [Concomitant]
     Indication: PROPHYLAXIS
     Route: 065

REACTIONS (6)
  - ANAPHYLACTIC REACTION [None]
  - ANAPHYLACTIC SHOCK [None]
  - BRONCHOSPASM [None]
  - COAGULOPATHY [None]
  - HYPOTENSION [None]
  - OPERATIVE HAEMORRHAGE [None]
